FAERS Safety Report 7073405-0 (Version None)
Quarter: 2010Q4

REPORT INFORMATION
  Report Type: 
  Country: None (occurrence: None)
  Receive Date: 20101029
  Receipt Date: 20100618
  Transmission Date: 20110411
  Serious: No
  Sender: FDA-Public Use
  Company Number: A0864551A

PATIENT
  Age: 53 Year
  Sex: Female

DRUGS (9)
  1. ADVAIR DISKUS 100/50 [Suspect]
     Indication: ASTHMA
     Dosage: 1PUFF PER DAY
     Route: 055
     Dates: start: 20100101
  2. NEXIUM [Concomitant]
  3. TOPROL-XL [Concomitant]
  4. ALLERGY MEDICATION [Concomitant]
  5. VERAMYST [Concomitant]
  6. TOPAMAX [Concomitant]
  7. SYNTHROID [Concomitant]
  8. MUCINEX [Concomitant]
  9. LOESTRIN 1.5/30 [Concomitant]

REACTIONS (3)
  - CONTACT LENS INTOLERANCE [None]
  - DRY EYE [None]
  - THIRST [None]
